FAERS Safety Report 5961440-2 (Version None)
Quarter: 2008Q4

REPORT INFORMATION
  Report Type: 
  Country: None (occurrence: None)
  Receive Date: 20081121
  Receipt Date: 20081021
  Transmission Date: 20090506
  Serious: No
  Sender: FDA-Public Use
  Company Number: US-BAYER-200836775NA

PATIENT
  Age: 24 Year
  Sex: Female
  Weight: 57 kg

DRUGS (2)
  1. MIRENA [Suspect]
     Indication: CONTRACEPTION
     Route: 015
  2. AUGMENTIN [Concomitant]
     Indication: PHARYNGITIS STREPTOCOCCAL
     Dosage: TOTAL DAILY DOSE: 2000 MG
     Route: 048

REACTIONS (2)
  - HYPOMENORRHOEA [None]
  - PHARYNGITIS STREPTOCOCCAL [None]
